FAERS Safety Report 21605797 (Version 1)
Quarter: 2022Q4

REPORT INFORMATION
  Report Type: Spontaneous
  Country: US (occurrence: None)
  Receive Date: 20221116
  Receipt Date: 20221116
  Transmission Date: 20230113
  Serious: No
  Sender: FDA-Public Use
  Company Number: None

PATIENT
  Age: 82 Year
  Sex: Male
  Weight: 77.11 kg

DRUGS (18)
  1. XGEVA [Suspect]
     Active Substance: DENOSUMAB
     Indication: Prostate cancer
     Dosage: FREQUENCY : MONTHLY;?
     Route: 058
     Dates: start: 202102, end: 20221115
  2. AMLODIPINE [Concomitant]
     Active Substance: AMLODIPINE BESYLATE
  3. ATORVASTATIN [Concomitant]
     Active Substance: ATORVASTATIN
  4. CASODEX [Concomitant]
     Active Substance: BICALUTAMIDE
  5. CYANOCOBALAMIN [Concomitant]
     Active Substance: CYANOCOBALAMIN
  6. FLUZONE [Concomitant]
     Active Substance: INFLUENZA A VIRUS A/CALIFORNIA/7/2009 X-179A (H1N1) ANTIGEN (FORMALDEHYDE INACTIVATED)\INFLUENZA A V
  7. FUROSEMIDE [Concomitant]
     Active Substance: FUROSEMIDE
  8. ISOSORBIDE [Concomitant]
     Active Substance: ISOSORBIDE
  9. LOSARTAN [Concomitant]
     Active Substance: LOSARTAN
  10. METFORMIN [Concomitant]
     Active Substance: METFORMIN HYDROCHLORIDE
  11. METOPROLOL [Concomitant]
     Active Substance: METOPROLOL
  12. MODERNA COVID-19 [Concomitant]
  13. NITROSTAT [Concomitant]
     Active Substance: NITROGLYCERIN
  14. NORCO [Concomitant]
     Active Substance: ACETAMINOPHEN\HYDROCODONE BITARTRATE
  15. NOVOLIN NOS [Concomitant]
     Active Substance: INSULIN HUMAN
  16. PANTOPRAZOLE [Concomitant]
     Active Substance: PANTOPRAZOLE
  17. VITAMIN D [Concomitant]
     Active Substance: VITAMIN D NOS
  18. WARFARIN [Concomitant]
     Active Substance: WARFARIN

REACTIONS (2)
  - Hypocalcaemia [None]
  - Therapy interrupted [None]
